FAERS Safety Report 6408594-1 (Version None)
Quarter: 2009Q4

REPORT INFORMATION
  Report Type: 
  Country: None (occurrence: None)
  Receive Date: 20091021
  Receipt Date: 20091013
  Transmission Date: 20100525
  Serious: Yes (Hospitalization, Other)
  Sender: FDA-Public Use
  Company Number: FR-JNJFOC-20091004522

PATIENT
  Age: 46 Year
  Sex: Male

DRUGS (4)
  1. INFLIXIMAB [Suspect]
     Dosage: ALSO REPORTED AS 5 MG/KG; RECEIVED A TOTAL OF 19 INFUSIONS
     Route: 042
  2. INFLIXIMAB [Suspect]
     Indication: BEHCET'S SYNDROME
     Dosage: ALSO REPORTED AS 3MG/KG
     Route: 042
  3. CORTICOSTEROIDS [Suspect]
     Indication: UVEITIS
     Dosage: GIVEN FOR 30 MONTHS
     Route: 048
  4. MYCOPHENOLATE MOFETIL [Suspect]
     Indication: UVEITIS
     Dosage: GIVEN FOR 14 MONTHS

REACTIONS (1)
  - MENINGITIS CRYPTOCOCCAL [None]
